FAERS Safety Report 7480713-8 (Version None)
Quarter: 2011Q2

REPORT INFORMATION
  Report Type: 
  Country: None (occurrence: None)
  Receive Date: 20110516
  Receipt Date: 20101109
  Transmission Date: 20111010
  Serious: Yes (Hospitalization, Other)
  Sender: FDA-Public Use
  Company Number: US-BAYER-201038052NA

PATIENT
  Age: 50 Year
  Sex: Female
  Weight: 70.295 kg

DRUGS (11)
  1. ZOCOR [Concomitant]
     Dosage: 20 MG, QD
  2. CLARITIN [Concomitant]
     Dosage: 10 MG, QD
  3. CARVEDILOL [Concomitant]
     Dosage: 25 MG, BID
  4. YAZ [Suspect]
     Indication: ACNE
     Dosage: UNK
     Dates: start: 20070501, end: 20070801
  5. CELEXA [Concomitant]
     Dosage: UNK UNK, QD
  6. PLAVIX [Concomitant]
     Dosage: 75 MG, QD
  7. ALTACE [Concomitant]
     Dosage: 10 MG, QD
  8. YAZ [Suspect]
     Indication: VAGINAL HAEMORRHAGE
  9. ZYRTEC [Concomitant]
  10. ALBUTEROL [Concomitant]
  11. AMLODIPINE BESYLATE [Concomitant]
     Dosage: 10 MG, QD

REACTIONS (7)
  - MYOCARDIAL INFARCTION [None]
  - DYSPNOEA [None]
  - HYPERTENSION [None]
  - PAIN IN EXTREMITY [None]
  - INJURY [None]
  - CHEST PAIN [None]
  - HYPERHIDROSIS [None]
